FAERS Safety Report 9650349 (Version 1)
Quarter: 2013Q4

REPORT INFORMATION
  Report Type: Spontaneous
  Country: US (occurrence: US)
  Receive Date: 20131028
  Receipt Date: 20131028
  Transmission Date: 20140711
  Serious: Yes (Other)
  Sender: FDA-Public Use
  Company Number: US-NAPPMUNDI-USA-2013-0100338

PATIENT
  Sex: Male

DRUGS (1)
  1. OXYCONTIN (NDA 22-272) [Suspect]
     Indication: PRODUCT USED FOR UNKNOWN INDICATION
     Dosage: 80 MG, SEE TEXT
     Route: 048

REACTIONS (5)
  - Drug dependence [Unknown]
  - Drug abuse [Unknown]
  - Wrong technique in drug usage process [Unknown]
  - Drug effect increased [Unknown]
  - Euphoric mood [Unknown]
